FAERS Safety Report 24889552 (Version 2)
Quarter: 2025Q1

REPORT INFORMATION
  Report Type: Report from Study
  Country: JP (occurrence: JP)
  Receive Date: 20250127
  Receipt Date: 20250203
  Transmission Date: 20250408
  Serious: Yes (Hospitalization)
  Sender: ALEXION PHARMACEUTICALS
  Company Number: JP-ASTRAZENECA-250006375_032320_P_1

PATIENT
  Age: 46 Year

DRUGS (8)
  1. ANIFROLUMAB [Suspect]
     Active Substance: ANIFROLUMAB
     Indication: Systemic lupus erythematosus
     Dosage: 300 MILLIGRAM, Q4W
  2. PREDONINE [Concomitant]
     Active Substance: PREDNISOLONE
     Indication: Systemic lupus erythematosus
  3. PLAQUENIL [Concomitant]
     Active Substance: HYDROXYCHLOROQUINE SULFATE
     Indication: Systemic lupus erythematosus
  4. PROGRAF [Concomitant]
     Active Substance: TACROLIMUS
     Indication: Systemic lupus erythematosus
  5. ELDECALCITOL [Concomitant]
     Active Substance: ELDECALCITOL
     Indication: Osteoporosis
  6. FAMOTIDINE [Concomitant]
     Active Substance: FAMOTIDINE
     Indication: Prophylaxis
  7. DILTIAZEM HYDROCHLORIDE [Concomitant]
     Active Substance: DILTIAZEM HYDROCHLORIDE
     Indication: Supraventricular tachycardia
  8. Vasolan [Concomitant]
     Indication: Supraventricular tachycardia

REACTIONS (3)
  - Dizziness [Recovered/Resolved]
  - Vomiting [Recovered/Resolved]
  - Malaise [Recovered/Resolved]
